FAERS Safety Report 8279807-9 (Version None)
Quarter: 2012Q2

REPORT INFORMATION
  Report Type: 
  Country: None (occurrence: None)
  Receive Date: 20120412
  Receipt Date: 20111017
  Transmission Date: 20120825
  Serious: No
  Sender: FDA-Public Use
  Company Number: US-ASTRAZENECA-2011SE62799

PATIENT

DRUGS (14)
  1. NEXIUM [Suspect]
     Route: 048
  2. LISINOPRIL [Suspect]
     Route: 048
  3. ASPIRIN [Concomitant]
     Route: 048
  4. METOPROLOL SUCCINATE EXTENDED RELEASE [Suspect]
     Route: 048
  5. NITROGLYCERIN [Concomitant]
     Dosage: 0.4 APPLY EVERY DAY
  6. CLOBETASOL PROPIONATE [Concomitant]
     Dosage: TWICE A DAY
  7. VOLTAREN [Concomitant]
     Dosage: 1 % TWICE A DAY TO AREA OF PAIN
  8. PLAVIX [Concomitant]
     Route: 048
  9. LOPERAMIDE HCL [Concomitant]
     Indication: DIARRHOEA
     Dosage: 2 CAPSULES AT ONSET 1 CAPSULE EVERY 4 HOURS AS NEEDED.
     Route: 048
  10. PRAVACHOL [Concomitant]
     Indication: HYPERCHOLESTEROLAEMIA
     Route: 048
  11. CALCIUM CARBONATE [Concomitant]
  12. NASONEX [Concomitant]
     Dosage: 50 MG/ACT 2 SPRAYS NOSTRIL EVERYDAY
  13. ISOSORBIDE MONONITRATE [Concomitant]
     Indication: CARDIAC DISORDER
     Route: 048
  14. NITROGLYCERIN [Concomitant]
     Dosage: 1 SQ AS NEEDED

REACTIONS (6)
  - HYPERCHOLESTEROLAEMIA [None]
  - ESSENTIAL HYPERTENSION [None]
  - TYPE 2 DIABETES MELLITUS [None]
  - RHINITIS [None]
  - OEDEMA PERIPHERAL [None]
  - DYSPNOEA [None]
